FAERS Safety Report 11206390 (Version 1)
Quarter: 2015Q2

REPORT INFORMATION
  Report Type: Spontaneous
  Country: US (occurrence: None)
  Receive Date: 20150618
  Receipt Date: 20150618
  Transmission Date: 20150821
  Serious: Yes (Hospitalization, Disabling, Other)
  Sender: FDA-Public Use
  Company Number: None

PATIENT
  Age: 29 Year
  Sex: Male
  Weight: 68.04 kg

DRUGS (7)
  1. PANTOPRAZOLE [Concomitant]
     Active Substance: PANTOPRAZOLE SODIUM
  2. LYRICA [Concomitant]
     Active Substance: PREGABALIN
  3. PERCOCET [Concomitant]
     Active Substance: ACETAMINOPHEN\OXYCODONE HYDROCHLORIDE
  4. FENTANYL. [Concomitant]
     Active Substance: FENTANYL
  5. ONDANSETRON [Concomitant]
     Active Substance: ONDANSETRON
  6. NOVALOG INSULIN [Concomitant]
  7. LEVAQUIN [Suspect]
     Active Substance: LEVOFLOXACIN
     Indication: RESPIRATORY FAILURE
     Route: 042

REACTIONS (10)
  - Anxiety [None]
  - Respiratory failure [None]
  - Neuropathy peripheral [None]
  - Blood pressure increased [None]
  - Head injury [None]
  - Pain [None]
  - Panic reaction [None]
  - Cardiac failure [None]
  - Fall [None]
  - Amnesia [None]

NARRATIVE: CASE EVENT DATE: 20141201
